FAERS Safety Report 4555662-5 (Version None)
Quarter: 2005Q1

REPORT INFORMATION
  Report Type: 
  Country: None (occurrence: None)
  Receive Date: 20050119
  Receipt Date: 20050105
  Transmission Date: 20050727
  Serious: Yes (Hospitalization)
  Sender: FDA-Public Use
  Company Number: PHBS2005CH00545

PATIENT
  Age: 62 Year
  Sex: 0

DRUGS (4)
  1. BRINERDIN [Suspect]
     Indication: HYPERTENSION
     Dosage: 1 TABLET/DAY
     Route: 048
     Dates: end: 20041020
  2. FLUOXETINE HCL [Suspect]
     Indication: DEPRESSION
     Dosage: 40 MG/DAY
     Route: 048
     Dates: end: 20041020
  3. LITHIUM CARBONATE [Suspect]
     Indication: DEPRESSION
     Dosage: 1.5 TABLET/DAY
     Route: 048
     Dates: start: 20041011, end: 20041019
  4. BUSPAR [Concomitant]
     Dosage: 20 MG/DAY
     Route: 048

REACTIONS (6)
  - CONTUSION [None]
  - ELECTROCARDIOGRAM QT PROLONGED [None]
  - FACE INJURY [None]
  - FEELING ABNORMAL [None]
  - HYPOKALAEMIA [None]
  - SYNCOPE [None]
